FAERS Safety Report 20931781 (Version 7)
Quarter: 2022Q3

REPORT INFORMATION
  Report Type: Report from Study
  Country: RO (occurrence: RO)
  Receive Date: 20220608
  Receipt Date: 20220818
  Transmission Date: 20221026
  Serious: Yes (Hospitalization)
  Sender: FDA-Public Use
  Company Number: RO-GLAXOSMITHKLINE-RO2022087860

PATIENT

DRUGS (8)
  1. NIRAPARIB [Suspect]
     Active Substance: NIRAPARIB
     Indication: Non-small cell lung cancer
     Dosage: DOSE AT CYCLE 1 - DAY 1
     Route: 048
     Dates: start: 20220406
  2. NIRAPARIB [Suspect]
     Active Substance: NIRAPARIB
     Dosage: DOSE AT CYCLE 1 - DAY 15
     Route: 048
     Dates: start: 20220420
  3. NIRAPARIB [Suspect]
     Active Substance: NIRAPARIB
     Dosage: DOSE AT CYCLE 2 - DAY 1
     Route: 048
     Dates: start: 20220427
  4. NIRAPARIB [Suspect]
     Active Substance: NIRAPARIB
     Dosage: DOSE AT CYCLE 3 - DAY 1
     Route: 048
     Dates: start: 20220518
  5. NIRAPARIB [Suspect]
     Active Substance: NIRAPARIB
     Dosage: 100 MG, QD
     Route: 048
     Dates: start: 20220609
  6. PEMBROLIZUMAB [Suspect]
     Active Substance: PEMBROLIZUMAB
     Indication: Non-small cell lung cancer
     Dosage: DOSE AT CYCLE 1 - DAY 1
     Route: 042
     Dates: start: 20220406, end: 20220406
  7. PEMBROLIZUMAB [Suspect]
     Active Substance: PEMBROLIZUMAB
     Dosage: DOSE AT CYCLE 2 - DAY 1
     Route: 042
     Dates: start: 20220427, end: 20220427
  8. PEMBROLIZUMAB [Suspect]
     Active Substance: PEMBROLIZUMAB
     Dosage: DOSE AT CYCLE 3 - DAY 1
     Route: 042
     Dates: start: 20220518, end: 20220518

REACTIONS (1)
  - Tonsillitis [Recovered/Resolved]

NARRATIVE: CASE EVENT DATE: 20220529
